FAERS Safety Report 13816770 (Version 1)
Quarter: 2017Q3

REPORT INFORMATION
  Report Type: Spontaneous
  Country: US (occurrence: US)
  Receive Date: 20170731
  Receipt Date: 20170731
  Transmission Date: 20171127
  Serious: No
  Sender: FDA-Public Use
  Company Number: US-JNJFOC-20170615494

PATIENT
  Age: 65 Year
  Sex: Female
  Weight: 77.11 kg

DRUGS (2)
  1. CHILDRENS ZYRTEC ALLERGY [Suspect]
     Active Substance: CETIRIZINE HYDROCHLORIDE
     Indication: MULTIPLE ALLERGIES
     Dosage: ONCE A DAY, EVERY OTHER DAY
     Route: 048
     Dates: start: 20170521, end: 20170530
  2. CHILDRENS ZYRTEC ALLERGY [Suspect]
     Active Substance: CETIRIZINE HYDROCHLORIDE
     Route: 048

REACTIONS (4)
  - Arthralgia [Recovering/Resolving]
  - Inappropriate schedule of drug administration [Recovering/Resolving]
  - Off label use [Recovering/Resolving]
  - Inflammation [Recovering/Resolving]

NARRATIVE: CASE EVENT DATE: 20170521
